FAERS Safety Report 17865994 (Version 1)
Quarter: 2020Q2

REPORT INFORMATION
  Report Type: Spontaneous
  Country: US (occurrence: US)
  Receive Date: 20200605
  Receipt Date: 20200605
  Transmission Date: 20200714
  Serious: No
  Sender: FDA-Public Use
  Company Number: US-AMGEN-USASP2020084213

PATIENT
  Age: 26 Year
  Sex: Female

DRUGS (7)
  1. BLEOMYCIN [Concomitant]
     Active Substance: BLEOMYCIN SULFATE
     Indication: SMALL CELL CARCINOMA
     Dosage: 15 UNITS/M2, QMO (OVER 24 HOUR ON DAY 2)
     Route: 042
     Dates: start: 201107, end: 201112
  2. ETOPOSIDE. [Concomitant]
     Active Substance: ETOPOSIDE
     Indication: SMALL CELL CARCINOMA
     Dosage: 200 MILLIGRAM/SQ. METER, QMO (2 HOUR ON DAY 3)
     Route: 042
     Dates: start: 201107, end: 201112
  3. CISPLATIN. [Concomitant]
     Active Substance: CISPLATIN
     Indication: SMALL CELL CARCINOMA
     Dosage: 90 MILLIGRAM/SQ. METER, QMO (4 HOUR ON DAY 1)
     Route: 042
     Dates: start: 201107, end: 201112
  4. CYCLOPHOSPHAMIDE. [Concomitant]
     Active Substance: CYCLOPHOSPHAMIDE
     Indication: SMALL CELL CARCINOMA
     Dosage: 1000 MILLIGRAM/SQ. METER, QMO (OVER 60 MIN ON DAY 2)
     Route: 042
     Dates: start: 201107, end: 201112
  5. PEGFILGRASTIM [Suspect]
     Active Substance: PEGFILGRASTIM
     Indication: PROPHYLAXIS
     Dosage: 6 MILLIGRAM, AFTER CHEMO
     Route: 065
     Dates: start: 201107, end: 201112
  6. VINBLASTINE [Concomitant]
     Active Substance: VINBLASTINE
     Indication: SMALL CELL CARCINOMA
     Dosage: 6 MILLIGRAM/SQ. METER, QMO (OVER 30 MIN ON DAY 1)
     Route: 042
     Dates: start: 201107, end: 201112
  7. DOXORUBICIN [Concomitant]
     Active Substance: DOXORUBICIN
     Indication: SMALL CELL CARCINOMA
     Dosage: 45 MILLIGRAM/SQ. METER, QMO (OVER 30 MIN ON DAY 3)
     Route: 042
     Dates: start: 201107, end: 201112

REACTIONS (2)
  - Maternal exposure before pregnancy [Recovered/Resolved]
  - Amenorrhoea [Recovered/Resolved]

NARRATIVE: CASE EVENT DATE: 2011
